FAERS Safety Report 26091386 (Version 1)
Quarter: 2025Q4

REPORT INFORMATION
  Report Type: Spontaneous
  Country: EU (occurrence: EU)
  Receive Date: 20251126
  Receipt Date: 20251126
  Transmission Date: 20260117
  Serious: Yes (Other)
  Sender: ABBVIE
  Company Number: None

PATIENT
  Age: 36 Year
  Sex: Female

DRUGS (3)
  1. RINVOQ [Suspect]
     Active Substance: UPADACITINIB
     Indication: Dermatitis atopic
     Route: 048
  2. LEVOTHYROXINE SODIUM [Concomitant]
     Active Substance: LEVOTHYROXINE SODIUM
     Indication: Dermatitis atopic
     Dosage: 75 MCG 1 TABLET/DAY FOR 4 DAYS A WEEK + 100 MCG 1 TABLET/DAY FOR 3 DAYS A WEEK
     Route: 048
  3. LEVOTHYROXINE SODIUM [Concomitant]
     Active Substance: LEVOTHYROXINE SODIUM
     Indication: Dermatitis atopic
     Dosage: 75 MCG 1 TABLET/DAY FOR 4 DAYS A WEEK + 100 MCG 1 TABLET/DAY FOR 3 DAYS A WEEK
     Route: 048

REACTIONS (3)
  - Herpes zoster [Recovered/Resolved]
  - Rash macular [Recovering/Resolving]
  - Weight increased [Recovered/Resolved]

NARRATIVE: CASE EVENT DATE: 20250101
